FAERS Safety Report 13359190 (Version 1)
Quarter: 2017Q1

REPORT INFORMATION
  Report Type: Spontaneous
  Country: US (occurrence: US)
  Receive Date: 20170322
  Receipt Date: 20170322
  Transmission Date: 20170429
  Serious: Yes (Other)
  Sender: FDA-Public Use
  Company Number: US-ELI_LILLY_AND_COMPANY-US201608005483

PATIENT
  Sex: Female
  Weight: 98.41 kg

DRUGS (2)
  1. CYMBALTA [Suspect]
     Active Substance: DULOXETINE HYDROCHLORIDE
     Dosage: 60 MG, QD
     Route: 065
  2. CYMBALTA [Suspect]
     Active Substance: DULOXETINE HYDROCHLORIDE
     Indication: PRODUCT USED FOR UNKNOWN INDICATION
     Dosage: UNK, UNKNOWN
     Route: 065

REACTIONS (13)
  - Paraesthesia [Unknown]
  - Fatigue [Unknown]
  - Agitation [Unknown]
  - Lethargy [Unknown]
  - Seizure [Unknown]
  - Suicidal ideation [Unknown]
  - Affect lability [Unknown]
  - Tremor [Unknown]
  - Suicide attempt [Recovered/Resolved]
  - Drug withdrawal syndrome [Unknown]
  - Headache [Unknown]
  - Dysphoria [Unknown]
  - Irritability [Unknown]
